FAERS Safety Report 4504429-2 (Version None)
Quarter: 2004Q4

REPORT INFORMATION
  Report Type: 
  Country: None (occurrence: None)
  Receive Date: 20041117
  Receipt Date: 20041117
  Transmission Date: 20050328
  Serious: Yes (Other)
  Sender: FDA-Public Use
  Company Number: None

PATIENT
  Age: 80 Year
  Sex: Female
  Weight: 53.0709 kg

DRUGS (6)
  1. TEQUIN [Suspect]
     Indication: PYREXIA
     Dosage: Q DAY
  2. VITAMIN [Concomitant]
  3. CALCIUM [Concomitant]
  4. SYNTHROID [Concomitant]
  5. LEXXEL [Concomitant]
  6. ECOTRIN [Concomitant]

REACTIONS (1)
  - BLOOD GLUCOSE INCREASED [None]
